FAERS Safety Report 4364451-6 (Version None)
Quarter: 2004Q2

REPORT INFORMATION
  Report Type: 
  Country: None (occurrence: None)
  Receive Date: 20040517
  Receipt Date: 20041222
  Transmission Date: 20050107
  Serious: Yes (Hospitalization)
  Sender: FDA-Public Use
  Company Number: MK200401-0295-1

PATIENT
  Age: 49 Year
  Sex: Female

DRUGS (1)
  1. METHADOSE [Suspect]
     Dosage: 80MG, DAILY
     Dates: start: 20040106, end: 20040110

REACTIONS (1)
  - RESPIRATORY ARREST [None]
